FAERS Safety Report 19711077 (Version 1)
Quarter: 2021Q3

REPORT INFORMATION
  Report Type: Spontaneous
  Country: US (occurrence: US)
  Receive Date: 20210817
  Receipt Date: 20210817
  Transmission Date: 20211014
  Serious: No
  Sender: FDA-Public Use
  Company Number: US-VERO BIOTECH-2115184

PATIENT

DRUGS (2)
  1. GENOSYL [Suspect]
     Active Substance: NITRIC OXIDE
     Route: 055
  2. GENOSYL [Suspect]
     Active Substance: NITRIC OXIDE

REACTIONS (5)
  - Underdose [None]
  - Device delivery system issue [None]
  - Exposure to toxic agent [None]
  - Device issue [None]
  - Device malfunction [None]

NARRATIVE: CASE EVENT DATE: 20210727
